FAERS Safety Report 5789021-4 (Version None)
Quarter: 2008Q2

REPORT INFORMATION
  Report Type: 
  Country: None (occurrence: None)
  Receive Date: 20080626
  Receipt Date: 20080620
  Transmission Date: 20081010
  Serious: Yes (Death)
  Sender: FDA-Public Use
  Company Number: A0734173A

PATIENT
  Age: 46 Year
  Sex: Male

DRUGS (6)
  1. VERAMYST [Suspect]
  2. TOPROL-XL [Concomitant]
  3. LISINOPRIL [Concomitant]
  4. FUROSEMIDE [Concomitant]
  5. SPIRIVA [Concomitant]
  6. ALBUTEROL [Concomitant]

REACTIONS (1)
  - MYOCARDIAL INFARCTION [None]
